FAERS Safety Report 5668728-3 (Version None)
Quarter: 2008Q1

REPORT INFORMATION
  Report Type: 
  Country: None (occurrence: None)
  Receive Date: 20080312
  Receipt Date: 20080312
  Transmission Date: 20080703
  Serious: Yes (Hospitalization)
  Sender: FDA-Public Use
  Company Number: None

PATIENT
  Age: 85 Year
  Sex: Male

DRUGS (1)
  1. LINEZOLID [Suspect]
     Indication: PNEUMONIA
     Dosage: 400MG EVERY DAY IV
     Route: 042
     Dates: start: 20071213, end: 20071216

REACTIONS (2)
  - ANAEMIA [None]
  - RESPIRATORY FAILURE [None]
